FAERS Safety Report 7478701-0 (Version None)
Quarter: 2011Q2

REPORT INFORMATION
  Report Type: 
  Country: None (occurrence: None)
  Receive Date: 20110513
  Receipt Date: 20110504
  Transmission Date: 20111010
  Serious: Yes (Other)
  Sender: FDA-Public Use
  Company Number: BR-JNJFOC-20110502392

PATIENT
  Age: 51 Year
  Sex: Female
  Weight: 55.1 kg

DRUGS (7)
  1. FOLIC ACID [Concomitant]
     Indication: RHEUMATOID ARTHRITIS
     Route: 048
  2. ERBITUX [Suspect]
     Indication: RHEUMATOID ARTHRITIS
     Route: 058
  3. LEFLUNOMIDE [Concomitant]
     Indication: RHEUMATOID ARTHRITIS
     Route: 048
  4. ERBITUX [Suspect]
     Route: 058
  5. CARBAMAZEPINE [Suspect]
     Indication: EPILEPSY
     Route: 048
  6. METHOTREXATE [Concomitant]
     Indication: RHEUMATOID ARTHRITIS
     Route: 048
  7. PHENOBARBITAL TAB [Suspect]
     Indication: EPILEPSY
     Route: 048

REACTIONS (1)
  - EPILEPSY [None]
